FAERS Safety Report 5339310-2 (Version None)
Quarter: 2007Q2

REPORT INFORMATION
  Report Type: 
  Country: None (occurrence: None)
  Receive Date: 20070525
  Receipt Date: 20070515
  Transmission Date: 20071010
  Serious: Yes (Death)
  Sender: FDA-Public Use
  Company Number: ACH200715397

PATIENT
  Age: 79 Year
  Sex: Female
  Weight: 70 kg

DRUGS (13)
  1. TRACLEER [Suspect]
     Indication: PULMONARY HYPERTENSION
     Dosage: SEE IMAGE
     Route: 048
     Dates: start: 20050801, end: 20050829
  2. TRACLEER [Suspect]
     Indication: PULMONARY HYPERTENSION
     Dosage: SEE IMAGE
     Route: 048
     Dates: start: 20050830, end: 20070401
  3. FOLIC ACID [Concomitant]
  4. PANTOZOL (PANTOPRAZOLE SODIUM) [Concomitant]
  5. SELECTIN (PRAVASTATIN SODIUM) [Concomitant]
  6. DILTIAZEM HYDROCHLORIDE [Concomitant]
  7. ENALAPRIL MALEATE [Concomitant]
  8. FUROSEMIDE [Concomitant]
  9. NOCTAMID (LORMETAZEPAM) [Concomitant]
  10. PREDNISOLONE [Concomitant]
  11. SELOKEEN (METOPROLOL SUCCINATE) [Concomitant]
  12. TRIAMTERENE [Concomitant]
  13. METHOTREXATE [Concomitant]

REACTIONS (1)
  - SUDDEN DEATH [None]
